FAERS Safety Report 9759917 (Version 1)
Quarter: 2013Q4

REPORT INFORMATION
  Report Type: Spontaneous
  Country: BR (occurrence: BR)
  Receive Date: 20131216
  Receipt Date: 20131216
  Transmission Date: 20140711
  Serious: Yes (Hospitalization)
  Sender: FDA-Public Use
  Company Number: BR-NOVOPROD-395215

PATIENT
  Sex: Female
  Weight: 75 kg

DRUGS (2)
  1. NOVOLIN N PENFILL [Suspect]
     Indication: PRODUCT USED FOR UNKNOWN INDICATION
     Dosage: 28 IU IN THE MORNING AND 14 IU AT NIGHT, IF NEEDED, FROM 4 TO 6 IU BEFORE LUNCH
     Route: 065
     Dates: start: 2003
  2. NOVOLIN R PENFILL [Suspect]
     Indication: PRODUCT USED FOR UNKNOWN INDICATION
     Dosage: FROM 2 TO 8 IU AS REQUIRED
     Route: 065
     Dates: start: 2003

REACTIONS (3)
  - Urinary tract infection [Unknown]
  - Hypertension [Unknown]
  - Hyperglycaemia [Unknown]
